FAERS Safety Report 4322316-X (Version None)
Quarter: 2004Q1

REPORT INFORMATION
  Report Type: 
  Country: None (occurrence: None)
  Receive Date: 20040319
  Receipt Date: 20040305
  Transmission Date: 20041129
  Serious: No
  Sender: FDA-Public Use
  Company Number: 2004UW04526

PATIENT
  Sex: Female

DRUGS (2)
  1. LOSEC [Suspect]
  2. MILK OF MAGNESIA TAB [Suspect]

REACTIONS (4)
  - DEPRESSION [None]
  - DRUG INEFFECTIVE [None]
  - PANIC REACTION [None]
  - PARAESTHESIA [None]
